FAERS Safety Report 19515255 (Version 3)
Quarter: 2021Q3

REPORT INFORMATION
  Report Type: Spontaneous
  Country: US (occurrence: US)
  Receive Date: 20210709
  Receipt Date: 20210728
  Transmission Date: 20211014
  Serious: Yes (Other)
  Sender: FDA-Public Use
  Company Number: NVSC2021US150581

PATIENT
  Sex: Male

DRUGS (2)
  1. ILEVRO [Suspect]
     Active Substance: NEPAFENAC
     Indication: POSTOPERATIVE CARE
     Dosage: 0.3 %, 2 DROPS DAILY
     Route: 065
  2. PREDNISONE. [Concomitant]
     Active Substance: PREDNISONE
     Indication: PRODUCT USED FOR UNKNOWN INDICATION
     Dosage: UNK
     Route: 065

REACTIONS (13)
  - Eye discharge [Unknown]
  - Swelling of eyelid [Unknown]
  - Photophobia [Unknown]
  - Visual impairment [Unknown]
  - Scab [Unknown]
  - Periorbital swelling [Unknown]
  - Eyelid margin crusting [Unknown]
  - Abnormal sensation in eye [Unknown]
  - Eye pain [Unknown]
  - Ocular discomfort [Unknown]
  - Vision blurred [Unknown]
  - Eye haemorrhage [Unknown]
  - Conjunctivitis [Unknown]
